FAERS Safety Report 6409686-3 (Version None)
Quarter: 2009Q4

REPORT INFORMATION
  Report Type: 
  Country: None (occurrence: None)
  Receive Date: 20091022
  Receipt Date: 20091013
  Transmission Date: 20100525
  Serious: Yes (Death)
  Sender: FDA-Public Use
  Company Number: BR-PFIZER INC-2009272484

PATIENT
  Age: 52 Year

DRUGS (1)
  1. AROMASIN [Suspect]
     Dosage: UNK
     Route: 048

REACTIONS (1)
  - DEATH [None]
